FAERS Safety Report 9797621 (Version 2)
Quarter: 2014Q1

REPORT INFORMATION
  Report Type: Spontaneous
  Country: JP (occurrence: JP)
  Receive Date: 20140106
  Receipt Date: 20140115
  Transmission Date: 20141002
  Serious: Yes (Hospitalization)
  Sender: FDA-Public Use
  Company Number: JP-ROCHE-1325718

PATIENT
  Age: 44 Year
  Sex: Female

DRUGS (13)
  1. AVASTIN [Suspect]
     Indication: COLON CANCER
     Dosage: DOSAGE IS UNCERTAIN.
     Route: 041
  2. AVASTIN [Suspect]
     Indication: COLON CANCER
     Dosage: DOSAGE IS UNCERTAIN.
     Route: 041
  3. AVASTIN [Suspect]
     Indication: COLON CANCER
     Dosage: DOSAGE IS UNCERTAIN.
     Route: 041
  4. TS-1 [Concomitant]
     Indication: COLON CANCER
     Dosage: DOSAGE IS UNCERTAIN.
     Route: 048
  5. IRINOTECAN [Concomitant]
     Indication: COLON CANCER
     Dosage: DOSAGE IS UNCERTAIN.
     Route: 041
  6. IRINOTECAN [Concomitant]
     Indication: COLON CANCER
     Dosage: DOSAGE IS UNCERTAIN.
     Route: 041
  7. ELPLAT [Concomitant]
     Indication: COLON CANCER
     Route: 041
  8. 5-FU [Concomitant]
     Indication: COLON CANCER
     Route: 041
  9. 5-FU [Concomitant]
     Indication: COLON CANCER
     Route: 040
  10. 5-FU [Concomitant]
     Indication: COLON CANCER
     Route: 041
  11. 5-FU [Concomitant]
     Indication: COLON CANCER
     Route: 040
  12. CALCIUM LEVOFOLINATE [Concomitant]
     Indication: COLON CANCER
     Route: 041
  13. CALCIUM LEVOFOLINATE [Concomitant]
     Indication: COLON CANCER
     Route: 041

REACTIONS (3)
  - Electrocardiogram ST segment depression [Recovered/Resolved]
  - Back pain [Recovered/Resolved]
  - Cardiac disorder [Recovered/Resolved]
